FAERS Safety Report 5277710-X (Version None)
Quarter: 2007Q1

REPORT INFORMATION
  Report Type: 
  Country: None (occurrence: None)
  Receive Date: 20061213
  Receipt Date: 20040709
  Transmission Date: 20070707
  Serious: Yes (Hospitalization)
  Sender: FDA-Public Use
  Company Number: 2004UW14297

PATIENT
  Age: 22 Year
  Sex: Female

DRUGS (7)
  1. SEROQUEL [Suspect]
     Dosage: 150 MG HS PO
     Route: 048
  2. EFFEXOR [Concomitant]
  3. REMERON [Concomitant]
  4. NEURONTIN [Concomitant]
  5. BUPROPION HCL [Concomitant]
  6. ZANTAC [Concomitant]
  7. BEXTRA [Concomitant]

REACTIONS (4)
  - CONFUSIONAL STATE [None]
  - DYSKINESIA [None]
  - RHABDOMYOLYSIS [None]
  - WHITE BLOOD CELL COUNT INCREASED [None]
